FAERS Safety Report 12934883 (Version 3)
Quarter: 2017Q1

REPORT INFORMATION
  Report Type: Report from Study
  Country: IT (occurrence: IT)
  Receive Date: 20161112
  Receipt Date: 20170213
  Transmission Date: 20170428
  Serious: Yes (Death, Hospitalization, Other)
  Sender: FDA-Public Use
  Company Number: IT-BRISTOL-MYERS SQUIBB COMPANY-BMS-2016-094199

PATIENT
  Age: 76 Year
  Sex: Female

DRUGS (1)
  1. NIVOLUMAB [Suspect]
     Active Substance: NIVOLUMAB
     Indication: NON-SMALL CELL LUNG CANCER
     Dosage: 3 MG/KG, Q2WK
     Route: 042
     Dates: start: 20160310

REACTIONS (8)
  - Haemoptysis [Unknown]
  - Asthenia [Unknown]
  - Hepatic function abnormal [Unknown]
  - Somnolence [Unknown]
  - Hypocalcaemia [Unknown]
  - Abnormal faeces [Unknown]
  - Death [Fatal]
  - Jaundice [Unknown]

NARRATIVE: CASE EVENT DATE: 20160320
